FAERS Safety Report 6442784-7 (Version None)
Quarter: 2009Q4

REPORT INFORMATION
  Report Type: 
  Country: None (occurrence: None)
  Receive Date: 20091117
  Receipt Date: 20091112
  Transmission Date: 20100525
  Serious: Yes (Other)
  Sender: FDA-Public Use
  Company Number: PHEH2009US15593

PATIENT
  Sex: Male
  Weight: 76.8 kg

DRUGS (2)
  1. EXJADE [Suspect]
     Indication: IRON OVERLOAD
     Dosage: 125 MG, QD
     Route: 048
     Dates: start: 20090727, end: 20091102
  2. EXJADE [Suspect]
     Dosage: 125 MG, QD
     Route: 048
     Dates: start: 20091109

REACTIONS (5)
  - ASPARTATE AMINOTRANSFERASE INCREASED [None]
  - CD4/CD8 RATIO DECREASED [None]
  - HAEMOGLOBIN DECREASED [None]
  - MARROW HYPERPLASIA [None]
  - SERUM FERRITIN INCREASED [None]
